FAERS Safety Report 5381743-2 (Version None)
Quarter: 2007Q3

REPORT INFORMATION
  Report Type: 
  Country: None (occurrence: None)
  Receive Date: 20070709
  Receipt Date: 20070629
  Transmission Date: 20080115
  Serious: Yes (Other)
  Sender: FDA-Public Use
  Company Number: PHBS2007BR11128

PATIENT
  Sex: Female

DRUGS (9)
  1. DIOVAN [Suspect]
     Dosage: 320 MG/DAY
     Route: 048
  2. LOTAR [Concomitant]
     Dosage: 100/5MG
  3. HIGROTON [Concomitant]
     Dosage: 12,5MG
  4. ATENSINA [Concomitant]
  5. ASPIRIN [Concomitant]
     Dosage: 100MG
  6. PLACIS [Concomitant]
  7. SIMVASTATIN [Concomitant]
     Dosage: 20MG
  8. FLUOXETINE HYDROCHLORIDE [Concomitant]
  9. ROHYPNOL [Concomitant]
     Dosage: 2MG

REACTIONS (3)
  - NAUSEA [None]
  - SWELLING [None]
  - VASCULAR OPERATION [None]
